FAERS Safety Report 4289890-3 (Version None)
Quarter: 2004Q1

REPORT INFORMATION
  Report Type: 
  Country: None (occurrence: None)
  Receive Date: 20040209
  Receipt Date: 20040120
  Transmission Date: 20041129
  Serious: Yes (Death)
  Sender: FDA-Public Use
  Company Number: E131130

PATIENT
  Age: 70 Year
  Sex: Male

DRUGS (4)
  1. CLOPIDOGREL BISULFATE [Suspect]
     Indication: ISCHAEMIC STROKE
     Dosage: 75 MG QD
     Route: 048
     Dates: start: 20020302, end: 20020308
  2. CLOPIDOGREL BISULFATE [Suspect]
     Indication: TRANSIENT ISCHAEMIC ATTACK
     Dosage: 75 MG QD
     Route: 048
     Dates: start: 20020302, end: 20020308
  3. BETA-BLOCKER [Concomitant]
  4. DIURETICS [Concomitant]

REACTIONS (9)
  - CARDIAC ARREST [None]
  - CEREBROVASCULAR ACCIDENT [None]
  - CHEST PAIN [None]
  - FLUSHING [None]
  - HYPERHIDROSIS [None]
  - HYPERTENSIVE HEART DISEASE [None]
  - LEFT VENTRICULAR FAILURE [None]
  - MYOCARDIAL INFARCTION [None]
  - TACHYPNOEA [None]
